FAERS Safety Report 18762168 (Version 1)
Quarter: 2021Q1

REPORT INFORMATION
  Report Type: Spontaneous
  Country: GB (occurrence: GB)
  Receive Date: 20210120
  Receipt Date: 20210120
  Transmission Date: 20210419
  Serious: Yes (Disabling)
  Sender: FDA-Public Use
  Company Number: NVSC2021GB008400

PATIENT
  Age: 30 Year
  Sex: Male
  Weight: 16 kg

DRUGS (1)
  1. CIPROFLOXACIN. [Suspect]
     Active Substance: CIPROFLOXACIN
     Indication: PROSTATITIS
     Dosage: 500 MG, BID
     Route: 048
     Dates: start: 202010, end: 202010

REACTIONS (8)
  - Depression [Not Recovered/Not Resolved]
  - Psychotic disorder [Not Recovered/Not Resolved]
  - Muscle spasms [Unknown]
  - Suicidal ideation [Recovered/Resolved with Sequelae]
  - Headache [Unknown]
  - Neuralgia [Not Recovered/Not Resolved]
  - Mood altered [Not Recovered/Not Resolved]
  - Dyspnoea [Not Recovered/Not Resolved]

NARRATIVE: CASE EVENT DATE: 202010
